FAERS Safety Report 5733650-0 (Version None)
Quarter: 2008Q2

REPORT INFORMATION
  Report Type: 
  Country: None (occurrence: None)
  Receive Date: 20080509
  Receipt Date: 20080229
  Transmission Date: 20081010
  Serious: No
  Sender: FDA-Public Use
  Company Number: A0707535A

PATIENT

DRUGS (2)
  1. ALTABAX [Suspect]
     Indication: DRUG USE FOR UNKNOWN INDICATION
     Route: 061
  2. UNKNOWN [Concomitant]

REACTIONS (2)
  - APPLICATION SITE IRRITATION [None]
  - DERMATITIS CONTACT [None]
